FAERS Safety Report 10391477 (Version 2)
Quarter: 2014Q3

REPORT INFORMATION
  Report Type: Spontaneous
  Country: US (occurrence: US)
  Receive Date: 20140818
  Receipt Date: 20140822
  Transmission Date: 20150326
  Serious: Yes (Other)
  Sender: FDA-Public Use
  Company Number: US-TEVA-502465USA

PATIENT
  Age: 62 Year
  Sex: Male

DRUGS (2)
  1. COPAXONE [Suspect]
     Active Substance: GLATIRAMER ACETATE
     Dates: start: 20120720
  2. COPAXONE [Suspect]
     Active Substance: GLATIRAMER ACETATE
     Indication: MULTIPLE SCLEROSIS
     Dates: start: 2014

REACTIONS (6)
  - Affect lability [Recovering/Resolving]
  - Aphasia [Recovering/Resolving]
  - Pain [Recovering/Resolving]
  - Visual acuity reduced [Recovering/Resolving]
  - Multiple sclerosis relapse [Recovering/Resolving]
  - Immobile [Recovering/Resolving]

NARRATIVE: CASE EVENT DATE: 20140813
